FAERS Safety Report 8839209 (Version 2)
Quarter: 2012Q4

REPORT INFORMATION
  Report Type: 
  Country: ES (occurrence: ES)
  Receive Date: 20121015
  Receipt Date: 20121029
  Transmission Date: 20130627
  Serious: Yes (Other)
  Sender: FDA-Public Use
  Company Number: ES-JNJFOC-20121003229

PATIENT
  Age: 52 Year
  Sex: Female

DRUGS (6)
  1. RISPERDAL [Suspect]
     Indication: ANXIETY
     Route: 048
  2. RISPERDAL [Suspect]
     Indication: DEPRESSED MOOD
     Route: 048
  3. RISPERDAL [Suspect]
     Indication: IRRITABILITY
     Route: 048
  4. FLUOXETINE [Concomitant]
     Indication: ANXIETY
     Route: 065
  5. FLUOXETINE [Concomitant]
     Indication: DEPRESSED MOOD
     Route: 065
  6. FLUOXETINE [Concomitant]
     Indication: IRRITABILITY
     Route: 065

REACTIONS (3)
  - Suicidal ideation [Recovered/Resolved]
  - Akathisia [Recovered/Resolved]
  - Depression [Unknown]
